FAERS Safety Report 23673995 (Version 7)
Quarter: 2024Q3

REPORT INFORMATION
  Report Type: Report from Study
  Country: US (occurrence: US)
  Receive Date: 20240326
  Receipt Date: 20240722
  Transmission Date: 20241016
  Serious: Yes (Hospitalization, Other)
  Sender: BIOGEN
  Company Number: US-ACORDA-ACO_176702_2024

PATIENT
  Age: 58 Year
  Sex: Female

DRUGS (2)
  1. VUMERITY [Suspect]
     Active Substance: DIROXIMEL FUMARATE
     Indication: Multiple sclerosis
     Dosage: 462 MILLIGRAM, BID
     Route: 050
     Dates: start: 20230331
  2. AMPYRA [Suspect]
     Active Substance: DALFAMPRIDINE
     Indication: Multiple sclerosis
     Dosage: 10 MILLIGRAM, BID
     Route: 050

REACTIONS (7)
  - Ankle fracture [Not Recovered/Not Resolved]
  - Fall [Recovered/Resolved]
  - Depression [Not Recovered/Not Resolved]
  - Sciatica [Not Recovered/Not Resolved]
  - Weight bearing difficulty [Not Recovered/Not Resolved]
  - Balance disorder [Unknown]
  - Diarrhoea [Not Recovered/Not Resolved]

NARRATIVE: CASE EVENT DATE: 20240217
